FAERS Safety Report 10378812 (Version 1)
Quarter: 2014Q1

REPORT INFORMATION
  Report Type: Spontaneous
  Country: US (occurrence: None)
  Receive Date: 20140306
  Receipt Date: 20140306
  Transmission Date: 20141002
  Serious: Yes (Other)
  Sender: FDA-Public Use
  Company Number: 163-21880-13051283

PATIENT
  Age: 78 Year
  Sex: Female

DRUGS (6)
  1. REVLIMID (LENALIDOMIDE) (25 MILLIGRAM, CAPSULES) [Suspect]
     Indication: PLASMA CELL MYELOMA
     Dosage: 25 MG, 21 IN 28 D, PO
     Route: 048
     Dates: start: 201006, end: 20130423
  2. DECADRON (DEXAMETHASONE) [Concomitant]
  3. GLIPIZIDE [Concomitant]
  4. GLYBURIDE (GLIBENCLAMIDE) [Concomitant]
  5. ALDORIL [Concomitant]
  6. COUMADIN (WARFARIN SODIUM) [Concomitant]

REACTIONS (2)
  - Deep vein thrombosis [None]
  - Plasma cell myeloma [None]
